FAERS Safety Report 25009889 (Version 1)
Quarter: 2025Q1

REPORT INFORMATION
  Report Type: Spontaneous
  Country: MY (occurrence: MY)
  Receive Date: 20250225
  Receipt Date: 20250225
  Transmission Date: 20250409
  Serious: Yes (Hospitalization, Other)
  Sender: MERCK SHARP & DOHME LLC
  Company Number: MY-009507513-2254750

PATIENT
  Sex: Male

DRUGS (3)
  1. PEMBROLIZUMAB [Suspect]
     Active Substance: PEMBROLIZUMAB
     Indication: Renal cell carcinoma stage III
     Dates: start: 201506, end: 2019
  2. PEMBROLIZUMAB [Suspect]
     Active Substance: PEMBROLIZUMAB
     Indication: Renal cell carcinoma stage III
     Dosage: MAINTENANCE THER?APY
     Dates: start: 2019
  3. ChAdOx1-S recombinant vaccine (AstraZeneca) [Concomitant]
     Indication: COVID-19 prophylaxis

REACTIONS (3)
  - Ulcerative keratitis [Recovering/Resolving]
  - Corneal perforation [Recovering/Resolving]
  - Inappropriate schedule of product administration [Unknown]

NARRATIVE: CASE EVENT DATE: 20190101
